FAERS Safety Report 5558826-7 (Version None)
Quarter: 2007Q4

REPORT INFORMATION
  Report Type: 
  Country: None (occurrence: None)
  Receive Date: 20071214
  Receipt Date: 20070911
  Transmission Date: 20080405
  Serious: No
  Sender: FDA-Public Use
  Company Number: US-ABBOTT-07P-163-0416854-00

PATIENT
  Sex: Male
  Weight: 74.91 kg

DRUGS (4)
  1. HUMIRA [Suspect]
     Indication: CROHN'S DISEASE
     Dosage: LOADING
     Route: 058
     Dates: start: 20070910
  2. MESALAMINE [Concomitant]
     Indication: CROHN'S DISEASE
     Dosage: THREE 400 MG DOSAGE FORMS THREE PER DAY
     Route: 048
  3. AZOTHIPRINE [Concomitant]
     Indication: CROHN'S DISEASE
     Route: 048
  4. BUDESONIDE [Concomitant]
     Indication: CROHN'S DISEASE
     Dosage: TWO 3MG DOSAGE FORMS THREE TIMES A DAY
     Route: 048

REACTIONS (1)
  - ACCIDENTAL EXPOSURE [None]
